FAERS Safety Report 9745013 (Version 1)
Quarter: 2013Q4

REPORT INFORMATION
  Report Type: Report from Study
  Country: US (occurrence: US)
  Receive Date: 20131211
  Receipt Date: 20131211
  Transmission Date: 20140711
  Serious: Yes (Hospitalization)
  Sender: FDA-Public Use
  Company Number: US-PFIZER INC-2013348020

PATIENT
  Age: 67 Year
  Sex: Male
  Weight: 100.9 kg

DRUGS (4)
  1. NO SUBJECT DRUG [Suspect]
     Indication: ADENOCARCINOMA OF COLON
     Dosage: NO DOSE GIVEN
     Route: 048
  2. FLUOROURACIL [Suspect]
     Indication: ADENOCARCINOMA OF COLON
     Dosage: 400 MG/M2, IVP ON DAY 1 FOLLOWED BY 2400 MG/M2 IV OVER 46-48 HOURS ON DAY 1
     Route: 042
     Dates: start: 20131112
  3. ELOXATIN [Suspect]
     Indication: ADENOCARCINOMA OF COLON
     Dosage: 85 MG/M2, IV OVER 2 HOURS ON DAY 1
     Route: 042
     Dates: start: 20131112
  4. LEUCOVORIN [Concomitant]
     Indication: ADENOCARCINOMA OF COLON
     Dosage: 400 MG/M2, IV OVER 2 HOURS ON DAY 1
     Route: 042
     Dates: start: 20131112

REACTIONS (2)
  - Renal failure acute [Recovered/Resolved with Sequelae]
  - Dehydration [Recovered/Resolved with Sequelae]
